FAERS Safety Report 8990641 (Version 3)
Quarter: 2013Q1

REPORT INFORMATION
  Report Type: Spontaneous
  Country: JP (occurrence: JP)
  Receive Date: 20121228
  Receipt Date: 20130325
  Transmission Date: 20140127
  Serious: Yes (Other)
  Sender: FDA-Public Use
  Company Number: JP-JNJFOC-20121212500

PATIENT
  Age: 5 Year
  Sex: Female

DRUGS (3)
  1. ZYRTEC [Suspect]
     Route: 048
  2. ZYRTEC [Suspect]
     Indication: BRONCHOPNEUMONIA
     Dosage: 1.25 % TWICE A DAY
     Route: 048
     Dates: start: 20121212, end: 20121213
  3. OZEX [Concomitant]
     Indication: BRONCHOPNEUMONIA
     Route: 048
     Dates: start: 20121212, end: 20121217

REACTIONS (5)
  - Hallucination [Recovered/Resolved]
  - Somnolence [Recovered/Resolved]
  - Aggression [Recovered/Resolved]
  - Restlessness [Recovered/Resolved]
  - Off label use [Unknown]
